FAERS Safety Report 23634732 (Version 1)
Quarter: 2024Q1

REPORT INFORMATION
  Report Type: Spontaneous
  Country: KR (occurrence: KR)
  Receive Date: 20240315
  Receipt Date: 20240315
  Transmission Date: 20240410
  Serious: Yes (Hospitalization)
  Sender: FDA-Public Use
  Company Number: KR-NOVOPROD-1185898

PATIENT
  Age: 79 Year
  Sex: Male
  Weight: 106 kg

DRUGS (1)
  1. RYZODEG 70/30 [Suspect]
     Active Substance: INSULIN ASPART\INSULIN DEGLUDEC
     Indication: Diabetes mellitus
     Dosage: UNK

REACTIONS (3)
  - Spinal stenosis [Not Recovered/Not Resolved]
  - Blood glucose abnormal [Unknown]
  - Blood glucose decreased [Recovered/Resolved]
